FAERS Safety Report 8105016-X (Version None)
Quarter: 2012Q1

REPORT INFORMATION
  Report Type: 
  Country: None (occurrence: None)
  Receive Date: 20120201
  Receipt Date: 20120124
  Transmission Date: 20120608
  Serious: Yes (Other)
  Sender: FDA-Public Use
  Company Number: SE-GLAXOSMITHKLINE-B0778217A

PATIENT
  Sex: Female

DRUGS (3)
  1. LAMICTAL [Suspect]
     Indication: EPILEPSY
     Dosage: 500MG PER DAY
     Route: 065
  2. QUINAPRIL HCL [Concomitant]
     Indication: HYPERTENSION
  3. VITAMIN TABLETS [Concomitant]

REACTIONS (4)
  - SYNCOPE [None]
  - STRESS [None]
  - PRODUCT QUALITY ISSUE [None]
  - FATIGUE [None]
